FAERS Safety Report 10163218 (Version 1)
Quarter: 2014Q2

REPORT INFORMATION
  Report Type: Not Available
  Country: CA (occurrence: CA)
  Receive Date: 20140509
  Receipt Date: 20140509
  Transmission Date: 20141212
  Serious: Yes (Other)
  Sender: FDA-Public Use
  Company Number: CA-NAPPMUNDI-CAN-2014-0004872

PATIENT
  Age: 47 Year
  Sex: Female
  Weight: 83.45 kg

DRUGS (2)
  1. DILAUDID [Suspect]
     Indication: PRODUCT USED FOR UNKNOWN INDICATION
     Dosage: UNK
     Route: 065
  2. REMICADE [Suspect]
     Indication: PRODUCT USED FOR UNKNOWN INDICATION
     Dosage: 800 MG, Q 6 WEEKS
     Route: 042

REACTIONS (4)
  - Intestinal stenosis [Unknown]
  - Short-bowel syndrome [Unknown]
  - Small intestinal obstruction [Unknown]
  - Hypersensitivity [Unknown]
